FAERS Safety Report 9201629 (Version 1)
Quarter: 2013Q2

REPORT INFORMATION
  Report Type: Spontaneous
  Country: US (occurrence: US)
  Receive Date: 20130401
  Receipt Date: 20130401
  Transmission Date: 20140414
  Serious: Yes (Death)
  Sender: FDA-Public Use
  Company Number: PHEH2013US007264

PATIENT
  Age: 24 Year
  Sex: Male

DRUGS (1)
  1. TOBI [Suspect]
     Dosage: 300 MG, BID
     Dates: start: 20120126, end: 20121204

REACTIONS (1)
  - Death [Fatal]
